FAERS Safety Report 16697000 (Version 1)
Quarter: 2019Q3

REPORT INFORMATION
  Report Type: Spontaneous
  Country: US (occurrence: US)
  Receive Date: 20190813
  Receipt Date: 20190813
  Transmission Date: 20191004
  Serious: No
  Sender: FDA-Public Use
  Company Number: US-JNJFOC-20190813408

PATIENT
  Age: 41 Year
  Sex: Female
  Weight: 59.02 kg

DRUGS (1)
  1. ELMIRON [Suspect]
     Active Substance: PENTOSAN POLYSULFATE SODIUM
     Indication: CYSTITIS INTERSTITIAL
     Dosage: OVER 2 WEEKS AGO
     Route: 048
     Dates: start: 201907, end: 201907

REACTIONS (1)
  - Bladder pain [Recovering/Resolving]

NARRATIVE: CASE EVENT DATE: 201907
